FAERS Safety Report 4273929-5 (Version None)
Quarter: 2004Q1

REPORT INFORMATION
  Report Type: 
  Country: None (occurrence: None)
  Receive Date: 20040115
  Receipt Date: 20040112
  Transmission Date: 20041129
  Serious: Yes (Hospitalization)
  Sender: FDA-Public Use
  Company Number: US-JNJFOC-20040101769

PATIENT
  Age: 35 Year
  Sex: Female
  Weight: 55 kg

DRUGS (3)
  1. SPORANOX [Suspect]
     Indication: HISTOPLASMOSIS
     Dosage: SEE IMAGE
     Route: 048
     Dates: start: 20031111
  2. PREVACID [Concomitant]
  3. LANTUS [Concomitant]

REACTIONS (3)
  - COUGH [None]
  - HYPOGLYCAEMIA [None]
  - INTERNATIONAL NORMALISED RATIO INCREASED [None]
